FAERS Safety Report 5345224-4 (Version None)
Quarter: 2007Q2

REPORT INFORMATION
  Report Type: 
  Country: None (occurrence: None)
  Receive Date: 20070423
  Receipt Date: 20060407
  Transmission Date: 20071010
  Serious: Yes (Other)
  Sender: FDA-Public Use
  Company Number: WAES 0604USA01146

PATIENT

DRUGS (2)
  1. SINGULAIR [Suspect]
     Dosage: PO
     Route: 048
     Dates: end: 20051101
  2. LIPITOR [Concomitant]

REACTIONS (2)
  - BLOOD TRIGLYCERIDES INCREASED [None]
  - PANCREATITIS [None]
